FAERS Safety Report 8897579 (Version 1)
Quarter: 2012Q4

REPORT INFORMATION
  Report Type: 
  Country: US (occurrence: US)
  Receive Date: 20121108
  Receipt Date: 20121108
  Transmission Date: 20130627
  Serious: No
  Sender: FDA-Public Use
  Company Number: US-AMGEN-USASP2012038648

PATIENT
  Sex: Male

DRUGS (8)
  1. ENBREL [Suspect]
     Indication: PRODUCT USED FOR UNKNOWN INDICATION
     Dosage: 50 mg, qwk
     Route: 058
  2. TOPROL [Concomitant]
     Dosage: UNK
  3. ALLEGRA [Concomitant]
     Dosage: UNK
  4. NUVIGIL [Concomitant]
     Dosage: 50 mg, UNK
  5. MULTIVITAMIN                       /00097801/ [Concomitant]
     Dosage: UNK
  6. BABY ASPIRIN [Concomitant]
     Dosage: 81 mg, UNK
  7. ADEKS                              /06351501/ [Concomitant]
     Dosage: UNK
  8. VITAMIN B 12 [Concomitant]
     Dosage: 1 mg, UNK

REACTIONS (2)
  - Vertigo [Unknown]
  - Headache [Unknown]
